FAERS Safety Report 10494424 (Version 2)
Quarter: 2014Q4

REPORT INFORMATION
  Report Type: Spontaneous
  Country: CA (occurrence: None)
  Receive Date: 20141001
  Receipt Date: 20141002
  Transmission Date: 20150528
  Serious: Yes (Hospitalization)
  Sender: FDA-Public Use
  Company Number: KAD201409-001136

PATIENT
  Age: 55 Year
  Sex: Male

DRUGS (3)
  1. PEGINTERFERON ALFA (PEGINTERFERON ALFA) [Suspect]
     Active Substance: PEGINTERFERON ALFA-2A OR PEGINTERFERON ALFA-2B
     Indication: HEPATITIS C
     Dates: start: 201207
  2. RIBAVIRIN. [Suspect]
     Active Substance: RIBAVIRIN
     Indication: HEPATITIS C
     Dates: start: 201207
  3. BOCEPREVIR (BOCEPREVIR) [Suspect]
     Active Substance: BOCEPREVIR
     Indication: HEPATITIS C
     Dates: start: 201207

REACTIONS (8)
  - Memory impairment [None]
  - Nuclear magnetic resonance imaging brain abnormal [None]
  - Aphasia [None]
  - Ammonia increased [None]
  - Thrombocytopenia [None]
  - Psychotic disorder [None]
  - Cognitive disorder [None]
  - Disturbance in attention [None]

NARRATIVE: CASE EVENT DATE: 201212
